FAERS Safety Report 4887367-5 (Version None)
Quarter: 2006Q1

REPORT INFORMATION
  Report Type: 
  Country: None (occurrence: None)
  Receive Date: 20060123
  Receipt Date: 20060113
  Transmission Date: 20060701
  Serious: Yes (Hospitalization)
  Sender: FDA-Public Use
  Company Number: US-JNJFOC-20050905599

PATIENT
  Sex: Female
  Weight: 58.97 kg

DRUGS (14)
  1. REMICADE [Suspect]
     Indication: DRUG USE FOR UNKNOWN INDICATION
     Route: 042
  2. PENTASA [Concomitant]
     Indication: COLITIS
     Route: 048
  3. PREDNISONE [Concomitant]
     Route: 048
  4. PAXIL CR [Concomitant]
     Route: 048
  5. CIPRO [Concomitant]
     Dosage: END DATE:  DURING FIRST TRIMESTER; DURATION UNKNOWN
  6. PREVACID [Concomitant]
     Route: 048
     Dates: start: 20051001
  7. TYLENOL W/ CODEINE NO. 3 [Concomitant]
     Route: 048
  8. TYLENOL W/ CODEINE NO. 3 [Concomitant]
     Route: 048
  9. HYDROCODONE BITARTRATE [Concomitant]
  10. AMITRIPTYLINE HCL [Concomitant]
     Dates: end: 20050801
  11. FLEXERIL [Concomitant]
     Dates: end: 20050801
  12. PHERERGAN [Concomitant]
     Dates: end: 20051201
  13. ZOFRAN [Concomitant]
  14. PERIACTIN [Concomitant]

REACTIONS (2)
  - DRUG EXPOSURE DURING PREGNANCY [None]
  - HYPEREMESIS GRAVIDARUM [None]
